FAERS Safety Report 19846639 (Version 1)
Quarter: 2021Q3

REPORT INFORMATION
  Report Type: Spontaneous
  Country: US (occurrence: US)
  Receive Date: 20210915
  Receipt Date: 20210915
  Transmission Date: 20211014
  Serious: Yes (Death, Hospitalization)
  Sender: FDA-Public Use
  Company Number: None

PATIENT
  Age: 67 Year
  Sex: Male
  Weight: 278 kg

DRUGS (1)
  1. PIPERACILLIN/TAZOBACTAM (PIPERACILLIN NA 12GM/TAZOBACTAM NA 1.5G/VIL I [Suspect]
     Active Substance: PIPERACILLIN SODIUM\TAZOBACTAM SODIUM
     Indication: CELLULITIS
     Dosage: ?          OTHER STRENGTH:12GM, 1.5GM;?
     Dates: start: 20210425, end: 20210426

REACTIONS (6)
  - Rash pruritic [None]
  - Multiple organ dysfunction syndrome [None]
  - Rash [None]
  - Encephalopathy [None]
  - Tubulointerstitial nephritis [None]
  - Septic shock [None]

NARRATIVE: CASE EVENT DATE: 20210430
